FAERS Safety Report 16363043 (Version 1)
Quarter: 2019Q2

REPORT INFORMATION
  Report Type: Spontaneous
  Country: NO (occurrence: NO)
  Receive Date: 20190528
  Receipt Date: 20190528
  Transmission Date: 20190711
  Serious: Yes (Other)
  Sender: FDA-Public Use
  Company Number: NO-SAMSUNG BIOEPIS-SB-2019-12372

PATIENT
  Age: 29 Year
  Sex: Female

DRUGS (2)
  1. DYMISTA [Concomitant]
     Active Substance: AZELASTINE HYDROCHLORIDE\FLUTICASONE PROPIONATE
     Indication: NASAL CONGESTION
     Dosage: UNIT DOSE: 137 MICROGRAMS AZELASTINE/DOSE + 50 MICROGRAMS FLUTICASONE/DOSE. ADMINISTERED MORNING AND
     Route: 045
     Dates: start: 20170816, end: 20171020
  2. BENEPALI [Suspect]
     Active Substance: ETANERCEPT
     Indication: SPONDYLITIS
     Dosage: UNKNOWN
     Route: 058
     Dates: start: 20170727, end: 20170828

REACTIONS (5)
  - Foetal growth abnormality [Unknown]
  - Heart disease congenital [Unknown]
  - Holoprosencephaly [Unknown]
  - Abortion induced [Unknown]
  - Maternal exposure during pregnancy [Unknown]

NARRATIVE: CASE EVENT DATE: 20171116
